FAERS Safety Report 15335518 (Version 1)
Quarter: 2018Q3

REPORT INFORMATION
  Report Type: Spontaneous
  Country: US (occurrence: US)
  Receive Date: 20180830
  Receipt Date: 20180830
  Transmission Date: 20181010
  Serious: No
  Sender: FDA-Public Use
  Company Number: US-TEVA-2018-US-948007

PATIENT
  Sex: Male

DRUGS (6)
  1. DIAZEPAM. [Suspect]
     Active Substance: DIAZEPAM
  2. DIAZEPAM. [Suspect]
     Active Substance: DIAZEPAM
     Route: 065
     Dates: start: 2014, end: 2015
  3. DIAZEPAM. [Suspect]
     Active Substance: DIAZEPAM
  4. ATENOLOL. [Suspect]
     Active Substance: ATENOLOL
     Route: 065
  5. VISTARIL [Suspect]
     Active Substance: HYDROXYZINE PAMOATE
     Route: 065
  6. DIAZEPAM. [Suspect]
     Active Substance: DIAZEPAM
     Dates: start: 20180805

REACTIONS (6)
  - Withdrawal syndrome [Unknown]
  - Blood pressure increased [Unknown]
  - Heart rate increased [Unknown]
  - Nervousness [Unknown]
  - Hyperhidrosis [Unknown]
  - Confusional state [Unknown]

NARRATIVE: CASE EVENT DATE: 2015
